FAERS Safety Report 23093787 (Version 1)
Quarter: 2023Q4

REPORT INFORMATION
  Report Type: Spontaneous
  Country: FR (occurrence: FR)
  Receive Date: 20231023
  Receipt Date: 20231023
  Transmission Date: 20240109
  Serious: Yes (Hospitalization, Other)
  Sender: FDA-Public Use
  Company Number: FR-drreddys-LIT/FRA/23/0173561

PATIENT
  Age: 38 Year
  Sex: Female

DRUGS (4)
  1. CYCLOPHOSPHAMIDE [Suspect]
     Active Substance: CYCLOPHOSPHAMIDE
     Indication: HER2 positive breast cancer
     Dosage: AT 4 WEEKS OF GESTATION (WG) FOR 3 CYCLES UNTIL 10 WG
  2. EPIRUBICIN [Suspect]
     Active Substance: EPIRUBICIN
     Indication: HER2 positive breast cancer
     Dosage: AT 4 WEEKS OF GESTATION (WG) FOR 3 CYCLES UNTIL 10 WG
  3. PACLITAXEL [Suspect]
     Active Substance: PACLITAXEL
     Indication: HER2 positive breast cancer
     Dosage: FROM 16 WEEK OF GESTATION (WG) TO 29 WG
  4. TRASTUZUMAB [Suspect]
     Active Substance: TRASTUZUMAB
     Indication: HER2 positive breast cancer
     Dosage: FROM 16 WEEK OF GESTATION (WG) TO 29 WG

REACTIONS (5)
  - Oligohydramnios [Unknown]
  - Abortion induced [Unknown]
  - Unwanted pregnancy [Unknown]
  - Maternal exposure during pregnancy [Unknown]
  - Contraindicated product administered [Unknown]
